FAERS Safety Report 19844217 (Version 1)
Quarter: 2021Q3

REPORT INFORMATION
  Report Type: Spontaneous
  Country: US (occurrence: US)
  Receive Date: 20210917
  Receipt Date: 20210917
  Transmission Date: 20211014
  Serious: No
  Sender: FDA-Public Use
  Company Number: US-009507513-2109USA003647

PATIENT
  Age: 21 Year
  Weight: 120 kg

DRUGS (1)
  1. CUBICIN [Suspect]
     Active Substance: DAPTOMYCIN
     Indication: ENTEROCOCCAL BACTERAEMIA
     Dosage: 10 MG/KG/DAY (ALSO REPORTED 10MG/120KG/DAY)

REACTIONS (2)
  - No adverse event [Unknown]
  - Product prescribing issue [Unknown]
